FAERS Safety Report 4662688-X (Version None)
Quarter: 2005Q2

REPORT INFORMATION
  Report Type: 
  Country: None (occurrence: None)
  Receive Date: 20050512
  Receipt Date: 20050426
  Transmission Date: 20051028
  Serious: Yes (Hospitalization)
  Sender: FDA-Public Use
  Company Number: JP_050105608

PATIENT
  Age: 79 Year
  Sex: Female
  Weight: 49 kg

DRUGS (3)
  1. EVISTA [Suspect]
     Indication: OSTEOPOROSIS
     Dosage: 60 MG/1 DAY
     Dates: start: 20040914, end: 20041025
  2. ONEALFA (ALFACALCIDOL) [Concomitant]
  3. MOBIC [Concomitant]

REACTIONS (3)
  - OEDEMA [None]
  - PAIN [None]
  - PULMONARY THROMBOSIS [None]
